FAERS Safety Report 9349810 (Version 1)
Quarter: 2013Q2

REPORT INFORMATION
  Report Type: Spontaneous
  Country: TR (occurrence: None)
  Receive Date: 20130611
  Receipt Date: 20130611
  Transmission Date: 20140414
  Serious: Yes (Death, Other)
  Sender: FDA-Public Use
  Company Number: 2013P1006747

PATIENT
  Age: 52 Year
  Sex: Male

DRUGS (2)
  1. CEFTRIAXONE [Suspect]
     Indication: INFECTION PROPHYLAXIS
     Route: 042
  2. METRONIDAZOLE [Suspect]
     Indication: INFECTION PROPHYLAXIS

REACTIONS (7)
  - Confusional state [None]
  - Disorientation [None]
  - Grand mal convulsion [None]
  - Status epilepticus [None]
  - Myoclonus [None]
  - Haemorrhage [None]
  - Altered state of consciousness [None]
